FAERS Safety Report 13551749 (Version 2)
Quarter: 2017Q2

REPORT INFORMATION
  Report Type: Report from Study
  Country: US (occurrence: US)
  Receive Date: 20170516
  Receipt Date: 20170615
  Transmission Date: 20170830
  Serious: Yes (Other)
  Sender: FDA-Public Use
  Company Number: US-TEVA-769296USA

PATIENT
  Age: 31 Year
  Sex: Female

DRUGS (2)
  1. NUVARING [Concomitant]
     Active Substance: ETHINYL ESTRADIOL\ETONOGESTREL
  2. CLARAVIS [Suspect]
     Active Substance: ISOTRETINOIN
     Dosage: 90 MILLIGRAM DAILY;
     Route: 065
     Dates: start: 20170106, end: 20170510

REACTIONS (1)
  - Unintended pregnancy [Unknown]

NARRATIVE: CASE EVENT DATE: 20170406
